FAERS Safety Report 25158268 (Version 1)
Quarter: 2025Q2

REPORT INFORMATION
  Report Type: Other
  Country: US (occurrence: US)
  Receive Date: 20250404
  Receipt Date: 20250404
  Transmission Date: 20250716
  Serious: Yes (Hospitalization)
  Sender: WOODWARD PHARMA SERVICES
  Company Number: US-WW-2025-04803

PATIENT
  Age: 53 Year
  Sex: Male

DRUGS (4)
  1. FLUCONAZOLE [Suspect]
     Active Substance: FLUCONAZOLE
     Indication: Idiopathic CD4 lymphocytopenia
  2. FLUCONAZOLE [Suspect]
     Active Substance: FLUCONAZOLE
     Indication: Meningitis cryptococcal
  3. AMPHOTERICIN B [Concomitant]
     Active Substance: AMPHOTERICIN B
     Indication: Idiopathic CD4 lymphocytopenia
  4. AMPHOTERICIN B [Concomitant]
     Active Substance: AMPHOTERICIN B
     Indication: Meningitis cryptococcal

REACTIONS (2)
  - Hypercalcaemia [Recovered/Resolved]
  - Electrocardiogram J wave [Recovered/Resolved]
